FAERS Safety Report 8190423 (Version 3)
Quarter: 2013Q2

REPORT INFORMATION
  Report Type: Report from Study
  Country: NL (occurrence: NL)
  Receive Date: 20111020
  Receipt Date: 20130403
  Transmission Date: 20140414
  Serious: Yes (Other)
  Sender: FDA-Public Use
  Company Number: NL-BIOGENIDEC-2011BI038827

PATIENT
  Age: 34 Year
  Sex: Male

DRUGS (7)
  1. TYSABRI [Suspect]
     Indication: RELAPSING-REMITTING MULTIPLE SCLEROSIS
     Route: 042
     Dates: start: 20080122
  2. SOLUMEDROL [Concomitant]
     Dates: start: 20110727, end: 20110731
  3. CARBEMAZEPINE [Concomitant]
     Indication: EPILEPSY
     Route: 048
  4. SYMMETREL [Concomitant]
  5. VESICARE [Concomitant]
  6. FERROGRADUMET [Concomitant]
  7. FURADANTINE [Concomitant]

REACTIONS (1)
  - Oesophagitis [Recovered/Resolved]
